FAERS Safety Report 6313509-0 (Version None)
Quarter: 2009Q3

REPORT INFORMATION
  Report Type: 
  Country: None (occurrence: None)
  Receive Date: 20090814
  Receipt Date: 20090814
  Transmission Date: 20100115
  Serious: Yes (Other)
  Sender: FDA-Public Use
  Company Number: None

PATIENT
  Age: 54 Year
  Sex: Male

DRUGS (22)
  1. DIGOXIN [Suspect]
     Indication: ATRIAL FIBRILLATION
     Dosage: ONE TABLET DAILY PO AT LEAST 6/11/08-CURRENT
     Route: 048
     Dates: start: 20080611
  2. AMIODARONE HCL [Suspect]
     Indication: ATRIAL FIBRILLATION
     Dosage: ONE TABLET TWICE DAILY PO AT LEAST 6/11/08-CURRENT
     Route: 048
     Dates: start: 20080611
  3. ASPIRIN [Concomitant]
  4. AVAPRO [Concomitant]
  5. . [Concomitant]
  6. AXERT [Concomitant]
  7. BUPROPION HCL [Concomitant]
  8. CETIRIZINE HCL [Concomitant]
  9. CYCLOBENEZAPRIN [Concomitant]
  10. . [Concomitant]
  11. DILTIAZEM [Concomitant]
  12. DILTIAZEM [Concomitant]
  13. DIPHENOXYLATE HCL + ATROPINE SULFATE [Concomitant]
  14. FLUOXETINE [Concomitant]
  15. FUROSEMIDE [Concomitant]
  16. HYDROCHLOROTHIAZIDE [Concomitant]
  17. LEVITRA [Concomitant]
  18. LOVENOX [Concomitant]
  19. METOPROLOL TARTRATE [Concomitant]
  20. SIMVASTATIN [Concomitant]
  21. SPIRONOLACTONE [Concomitant]
  22. WARFARIN SODIUM [Concomitant]

REACTIONS (2)
  - PRODUCT SUBSTITUTION ISSUE [None]
  - SUPRAVENTRICULAR EXTRASYSTOLES [None]
